FAERS Safety Report 25874059 (Version 1)
Quarter: 2025Q4

REPORT INFORMATION
  Report Type: Spontaneous
  Country: US (occurrence: US)
  Receive Date: 20251002
  Receipt Date: 20251002
  Transmission Date: 20260118
  Serious: No
  Sender: ASTELLAS
  Company Number: US-ASTELLAS-2025-AER-053527

PATIENT
  Age: 52 Year
  Sex: Female

DRUGS (1)
  1. VEOZAH [Suspect]
     Active Substance: FEZOLINETANT
     Indication: Hot flush
     Route: 065

REACTIONS (2)
  - Hot flush [Unknown]
  - Disease recurrence [Unknown]

NARRATIVE: CASE EVENT DATE: 20250101
